FAERS Safety Report 10083081 (Version 1)
Quarter: 2014Q2

REPORT INFORMATION
  Report Type: Spontaneous
  Country: US (occurrence: US)
  Receive Date: 20140417
  Receipt Date: 20140417
  Transmission Date: 20141212
  Serious: No
  Sender: FDA-Public Use
  Company Number: US-BIOGENIDEC-2014BI036230

PATIENT
  Sex: Female

DRUGS (7)
  1. TYSABRI [Suspect]
     Indication: RELAPSING-REMITTING MULTIPLE SCLEROSIS
     Route: 042
     Dates: start: 20080403
  2. AMANTADINE [Concomitant]
     Route: 048
     Dates: start: 20131121
  3. VITAMIN D2 [Concomitant]
     Route: 048
     Dates: start: 20131121
  4. AMPYRA [Concomitant]
     Route: 048
  5. WELLBUTRIN XL [Concomitant]
     Route: 048
  6. MACROBID [Concomitant]
     Route: 048
  7. DETROL LA [Concomitant]
     Route: 048

REACTIONS (9)
  - Memory impairment [Unknown]
  - Myalgia [Unknown]
  - Anxiety [Unknown]
  - Depression [Unknown]
  - Fatigue [Unknown]
  - Muscle spasticity [Unknown]
  - Muscular weakness [Unknown]
  - Hyperreflexia [Unknown]
  - Gait disturbance [Unknown]
